FAERS Safety Report 16398935 (Version 2)
Quarter: 2019Q3

REPORT INFORMATION
  Report Type: Spontaneous
  Country: US (occurrence: US)
  Receive Date: 20190606
  Receipt Date: 20190802
  Transmission Date: 20191004
  Serious: Yes (Other)
  Sender: FDA-Public Use
  Company Number: US-009507513-1906USA001292

PATIENT
  Age: 35 Year
  Sex: Female
  Weight: 164.17 kg

DRUGS (2)
  1. NEXPLANON [Suspect]
     Active Substance: ETONOGESTREL
     Dosage: UNK
  2. NEXPLANON [Suspect]
     Active Substance: ETONOGESTREL
     Indication: CONTRACEPTION
     Dosage: 68MG, LEFT ARM
     Route: 058
     Dates: start: 20190524, end: 20190719

REACTIONS (6)
  - Device dislocation [Recovered/Resolved]
  - Implant site pain [Unknown]
  - Pain [Recovered/Resolved]
  - Medical device site discomfort [Unknown]
  - Skin swelling [Recovered/Resolved]
  - Device kink [Recovered/Resolved]

NARRATIVE: CASE EVENT DATE: 2019
